FAERS Safety Report 8443040-8 (Version None)
Quarter: 2012Q2

REPORT INFORMATION
  Report Type: 
  Country: None (occurrence: None)
  Receive Date: 20120615
  Receipt Date: 20120612
  Transmission Date: 20120825
  Serious: Yes (Other)
  Sender: FDA-Public Use
  Company Number: PHHY2012GB050332

PATIENT
  Age: 16 Year
  Sex: Male

DRUGS (1)
  1. FLUOXETINE [Suspect]
     Indication: MAJOR DEPRESSION
     Dosage: 20 MG, PER DAY
     Route: 048

REACTIONS (5)
  - WRONG TECHNIQUE IN DRUG USAGE PROCESS [None]
  - DISSOCIATION [None]
  - HOMICIDE [None]
  - FEELING ABNORMAL [None]
  - AGGRESSION [None]
